FAERS Safety Report 4307759-2 (Version None)
Quarter: 2004Q1

REPORT INFORMATION
  Report Type: 
  Country: None (occurrence: None)
  Receive Date: 20040227
  Receipt Date: 20040227
  Transmission Date: 20041129
  Serious: Yes (Hospitalization)
  Sender: FDA-Public Use
  Company Number: None

PATIENT
  Age: 48 Year
  Sex: Female

DRUGS (3)
  1. IL-2 2 MU SQ [Suspect]
     Indication: METASTATIC MALIGNANT MELANOMA
     Dosage: 2 MU SQ
     Route: 058
     Dates: start: 20030610, end: 20030807
  2. REGLAN [Suspect]
     Dosage: 10 MG Q 4 PRN
  3. VICODIN [Suspect]
     Dosage: 2 TABS Q4HRS PRN

REACTIONS (4)
  - CONVULSION [None]
  - MALIGNANT NEOPLASM PROGRESSION [None]
  - METASTASES TO CENTRAL NERVOUS SYSTEM [None]
  - METASTATIC MALIGNANT MELANOMA [None]
